FAERS Safety Report 11838537 (Version 2)
Quarter: 2016Q1

REPORT INFORMATION
  Report Type: Spontaneous
  Country: None (occurrence: US)
  Receive Date: 20151215
  Receipt Date: 20160107
  Transmission Date: 20160525
  Serious: No
  Sender: FDA-Public Use
  Company Number: US-RARE DISEASE THERAPEUTICS, INC.-1045526

PATIENT
  Sex: Male
  Weight: 66.7 kg

DRUGS (10)
  1. VITAMIN B6 [Concomitant]
     Active Substance: PYRIDOXINE HYDROCHLORIDE
  2. BUDESONIDE. [Concomitant]
     Active Substance: BUDESONIDE
  3. MONTELUKAST [Concomitant]
     Active Substance: MONTELUKAST SODIUM
  4. CYSTADANE [Suspect]
     Active Substance: BETAINE
     Indication: CYSTATHIONINE BETA-SYNTHASE DEFICIENCY
     Route: 048
     Dates: start: 20140826
  5. LEVALBUTEROL. [Concomitant]
     Active Substance: LEVALBUTEROL
  6. LANSOPRAZOLE. [Concomitant]
     Active Substance: LANSOPRAZOLE
  7. LORATADINE. [Concomitant]
     Active Substance: LORATADINE
  8. VITAMIN B12 [Concomitant]
     Active Substance: CYANOCOBALAMIN
  9. FOLIC ACID. [Concomitant]
     Active Substance: FOLIC ACID
  10. CALCIUM + VITAMIN D [Concomitant]
     Active Substance: CALCIUM\VITAMIN D

REACTIONS (3)
  - Overdose [None]
  - Asthma [None]
  - Respiratory tract infection [None]
